FAERS Safety Report 6198023-8 (Version None)
Quarter: 2009Q2

REPORT INFORMATION
  Report Type: 
  Country: None (occurrence: None)
  Receive Date: 20090521
  Receipt Date: 20090518
  Transmission Date: 20091009
  Serious: Yes (Other)
  Sender: FDA-Public Use
  Company Number: ES-ASTRAZENECA-2009AC01480

PATIENT
  Age: 67 Year
  Sex: Female

DRUGS (1)
  1. PULMICORT-100 [Suspect]
     Indication: BRONCHOSPASM
     Dosage: 0.25 MG/ML, 5 AMPULLES 2 ML.
     Route: 055
     Dates: start: 20090117, end: 20090117

REACTIONS (2)
  - ANAPHYLACTIC SHOCK [None]
  - LARYNGEAL OEDEMA [None]
